FAERS Safety Report 18151467 (Version 2)
Quarter: 2020Q3

REPORT INFORMATION
  Report Type: Spontaneous
  Country: US (occurrence: US)
  Receive Date: 20200814
  Receipt Date: 20200928
  Transmission Date: 20201103
  Serious: Yes (Hospitalization, Other)
  Sender: FDA-Public Use
  Company Number: US-ALLERGAN-2030199US

PATIENT
  Age: 0 Day
  Sex: Male

DRUGS (4)
  1. LEXAPRO [Suspect]
     Active Substance: ESCITALOPRAM OXALATE
     Indication: EXPOSURE DURING PREGNANCY
     Route: 064
  2. ESTRADIOL UNK [Suspect]
     Active Substance: ESTRADIOL
     Indication: EXPOSURE DURING PREGNANCY
     Route: 064
  3. ABILIFY [Suspect]
     Active Substance: ARIPIPRAZOLE
     Indication: EXPOSURE DURING PREGNANCY
     Dosage: 2.5 MG
     Route: 064
  4. PROGESTERONE UNK [Suspect]
     Active Substance: PROGESTERONE
     Indication: EXPOSURE DURING PREGNANCY
     Route: 064

REACTIONS (5)
  - Neonatal tachycardia [Recovered/Resolved]
  - Foetal exposure during pregnancy [Unknown]
  - Foetal growth restriction [Recovered/Resolved]
  - Premature baby [Recovered/Resolved]
  - Neonatal respiratory distress [Recovered/Resolved]

NARRATIVE: CASE EVENT DATE: 20170811
